FAERS Safety Report 19928376 (Version 1)
Quarter: 2021Q4

REPORT INFORMATION
  Report Type: Spontaneous
  Country: US (occurrence: US)
  Receive Date: 20211006
  Receipt Date: 20211006
  Transmission Date: 20220303
  Serious: Yes (Other)
  Sender: FDA-Public Use
  Company Number: None

PATIENT
  Age: 60 Year
  Sex: Female
  Weight: 62.1 kg

DRUGS (12)
  1. NEXLIZET [Suspect]
     Active Substance: BEMPEDOIC ACID\EZETIMIBE
     Indication: Blood cholesterol increased
     Dosage: ?          QUANTITY:1 TABLET(S);
     Route: 048
     Dates: start: 20210323, end: 20210805
  2. LIVALO [Concomitant]
     Active Substance: PITAVASTATIN CALCIUM
  3. LEVOTHYROXINE [Concomitant]
     Active Substance: LEVOTHYROXINE
  4. FISH OIL [Concomitant]
     Active Substance: FISH OIL
  5. VITAMINS [Concomitant]
     Active Substance: VITAMINS
  6. CURCUMIN [Concomitant]
     Active Substance: CURCUMIN
  7. ZINC [Concomitant]
     Active Substance: ZINC
  8. CITICOLINE [Concomitant]
     Active Substance: CITICOLINE
  9. FLAXSEED [Concomitant]
     Active Substance: FLAX SEED
  10. ASPIRIN [Concomitant]
     Active Substance: ASPIRIN
  11. PROBIOTICS NOS [Concomitant]
     Active Substance: PROBIOTICS NOS
  12. VITAMIN D [Concomitant]
     Active Substance: VITAMIN D NOS

REACTIONS (2)
  - Pain [None]
  - Tendon rupture [None]

NARRATIVE: CASE EVENT DATE: 20210523
